FAERS Safety Report 14393437 (Version 2)
Quarter: 2018Q2

REPORT INFORMATION
  Report Type: Spontaneous
  Country: US (occurrence: US)
  Receive Date: 20180116
  Receipt Date: 20180608
  Transmission Date: 20180711
  Serious: Yes (Other)
  Sender: FDA-Public Use
  Company Number: US-ASTRAZENECA-2018SE03445

PATIENT
  Age: 20725 Day
  Sex: Male
  Weight: 105.2 kg

DRUGS (56)
  1. FUROSEMIDE. [Concomitant]
     Active Substance: FUROSEMIDE
     Indication: BLOOD PRESSURE MEASUREMENT
     Dates: start: 2010
  2. MELATONIN [Concomitant]
     Active Substance: MELATONIN
     Indication: BLOOD PRESSURE MEASUREMENT
  3. NEXIUM [Suspect]
     Active Substance: ESOMEPRAZOLE MAGNESIUM
     Indication: COLITIS ULCERATIVE
     Route: 048
     Dates: start: 2011, end: 2016
  4. OMEPRAZOLE. [Suspect]
     Active Substance: OMEPRAZOLE
     Indication: GASTROOESOPHAGEAL REFLUX DISEASE
     Route: 048
     Dates: start: 20160323
  5. SIMVASTATIN. [Concomitant]
     Active Substance: SIMVASTATIN
     Indication: BLOOD PRESSURE MEASUREMENT
     Dates: start: 2010
  6. NEURONTIN [Concomitant]
     Active Substance: GABAPENTIN
     Indication: BLOOD PRESSURE MEASUREMENT
     Route: 048
     Dates: start: 20160323
  7. LOVASTATIN. [Concomitant]
     Active Substance: LOVASTATIN
     Indication: BLOOD PRESSURE MEASUREMENT
     Dates: start: 2010
  8. ASPIRIN. [Concomitant]
     Active Substance: ASPIRIN
     Indication: BLOOD PRESSURE MEASUREMENT
     Dates: start: 2010
  9. RANITIDINE. [Concomitant]
     Active Substance: RANITIDINE
     Dates: start: 2011, end: 2017
  10. CLARITHROMYCIN. [Concomitant]
     Active Substance: CLARITHROMYCIN
     Route: 048
     Dates: start: 20151216
  11. LIPITOR [Concomitant]
     Active Substance: ATORVASTATIN CALCIUM
     Route: 048
     Dates: start: 20061121
  12. NEXIUM [Suspect]
     Active Substance: ESOMEPRAZOLE MAGNESIUM
     Indication: COLITIS ULCERATIVE
     Route: 048
     Dates: start: 20160323
  13. ATENOLOL. [Concomitant]
     Active Substance: ATENOLOL
     Indication: BLOOD PRESSURE MEASUREMENT
     Dates: start: 2010
  14. NEURONTIN [Concomitant]
     Active Substance: GABAPENTIN
     Indication: BLOOD PRESSURE MEASUREMENT
     Dates: start: 2010
  15. LISINOPRIL. [Concomitant]
     Active Substance: LISINOPRIL
     Indication: BLOOD PRESSURE MEASUREMENT
     Dates: start: 2010
  16. METHOCARBAMOL. [Concomitant]
     Active Substance: METHOCARBAMOL
     Indication: BLOOD PRESSURE MEASUREMENT
  17. PEG 3350 [Concomitant]
     Active Substance: POLYETHYLENE GLYCOL 3350
     Dosage: 17 G AD X 7 DAYS
     Route: 048
     Dates: start: 20160327
  18. ACETAMINOPHEN. [Concomitant]
     Active Substance: ACETAMINOPHEN
     Indication: BLOOD PRESSURE MEASUREMENT
  19. ONDANSETRON [Concomitant]
     Active Substance: ONDANSETRON
     Indication: BLOOD PRESSURE MEASUREMENT
  20. NEXIUM [Suspect]
     Active Substance: ESOMEPRAZOLE MAGNESIUM
     Indication: GASTROOESOPHAGEAL REFLUX DISEASE
     Route: 048
     Dates: start: 20160323
  21. OMEPRAZOLE. [Suspect]
     Active Substance: OMEPRAZOLE
     Indication: COLITIS ULCERATIVE
     Route: 048
     Dates: start: 20160323
  22. BUPROPION. [Concomitant]
     Active Substance: BUPROPION
     Dates: start: 2010
  23. NOVOLOG [Concomitant]
     Active Substance: INSULIN ASPART
     Indication: BLOOD PRESSURE MEASUREMENT
     Dosage: INCREASED TO 14 UNITS WITH EACH MEAL
     Dates: start: 20160323
  24. LANTUS SOLOSTAR [Concomitant]
     Active Substance: INSULIN GLARGINE
     Indication: BLOOD PRESSURE MEASUREMENT
     Dosage: 42 UNITS
     Dates: start: 20151119
  25. ENALAPRIL [Concomitant]
     Active Substance: ENALAPRIL
     Indication: BLOOD PRESSURE MEASUREMENT
     Dates: start: 2010
  26. PEPTO-BISMOL [Concomitant]
     Active Substance: BISMUTH SUBSALICYLATE
     Route: 048
  27. HUMULIN NOS [Concomitant]
     Active Substance: INSULIN HUMAN
     Dosage: 70/30 10ML
     Dates: start: 20021014
  28. NAPROXEN. [Concomitant]
     Active Substance: NAPROXEN
     Route: 048
     Dates: start: 20030125
  29. CLONIDINE. [Concomitant]
     Active Substance: CLONIDINE
     Route: 048
     Dates: start: 20030827
  30. PROPRANOLOL [Concomitant]
     Active Substance: PROPRANOLOL HYDROCHLORIDE
     Route: 048
     Dates: start: 20040329
  31. AVANDIA [Concomitant]
     Active Substance: ROSIGLITAZONE MALEATE
     Route: 048
     Dates: start: 20060626
  32. NEXIUM [Suspect]
     Active Substance: ESOMEPRAZOLE MAGNESIUM
     Indication: GASTROOESOPHAGEAL REFLUX DISEASE
     Route: 048
     Dates: start: 2011, end: 2016
  33. LISINOPRIL. [Concomitant]
     Active Substance: LISINOPRIL
     Indication: BLOOD PRESSURE MEASUREMENT
     Route: 048
     Dates: start: 20140710
  34. NIACIN. [Concomitant]
     Active Substance: NIACIN
     Indication: BLOOD PRESSURE MEASUREMENT
     Dates: start: 2011
  35. NIACIN. [Concomitant]
     Active Substance: NIACIN
     Indication: BLOOD PRESSURE MEASUREMENT
     Route: 048
     Dates: start: 20160327
  36. ALBUTEROL. [Concomitant]
     Active Substance: ALBUTEROL
     Indication: BLOOD PRESSURE MEASUREMENT
  37. CINACALCET. [Concomitant]
     Active Substance: CINACALCET
     Indication: BLOOD PRESSURE MEASUREMENT
  38. MYCOPHENOLIC ACID. [Concomitant]
     Active Substance: MYCOPHENOLIC ACID
     Indication: BLOOD PRESSURE MEASUREMENT
  39. PRAVASTATIN. [Concomitant]
     Active Substance: PRAVASTATIN
     Indication: BLOOD PRESSURE MEASUREMENT
  40. RENAL CAP VITAMINS [Concomitant]
     Indication: BLOOD PRESSURE MEASUREMENT
     Dates: start: 2010
  41. OMEGA 3 FATTY ACIDS [Concomitant]
     Active Substance: OMEGA-3 FATTY ACIDS
     Dosage: 17 G AD X 7 DAYS
     Route: 048
     Dates: start: 20160327
  42. CIMETIDINE [Concomitant]
     Active Substance: CIMETIDINE
     Route: 048
     Dates: start: 20021014
  43. MECLOFENAMATE SODIUM. [Concomitant]
     Active Substance: MECLOFENAMATE SODIUM
     Route: 048
     Dates: start: 20040507
  44. NOVOLOG [Concomitant]
     Active Substance: INSULIN ASPART
     Indication: BLOOD PRESSURE MEASUREMENT
     Dates: start: 2010
  45. AVANDIA [Concomitant]
     Active Substance: ROSIGLITAZONE MALEATE
     Indication: BLOOD PRESSURE MEASUREMENT
     Dates: start: 2011
  46. ALKA-SELTZER [Concomitant]
     Active Substance: ANHYDROUS CITRIC ACID\ASPIRIN\SODIUM BICARBONATE
     Route: 048
  47. ALPRAZOLAM. [Concomitant]
     Active Substance: ALPRAZOLAM
     Route: 048
     Dates: start: 20040427
  48. PANTOPRAZOLE [Suspect]
     Active Substance: PANTOPRAZOLE
     Route: 048
     Dates: start: 20180409
  49. ATENOLOL. [Concomitant]
     Active Substance: ATENOLOL
     Indication: BLOOD PRESSURE MEASUREMENT
     Dates: start: 20140710
  50. NIASPAN [Concomitant]
     Active Substance: NIACIN
     Indication: BLOOD PRESSURE MEASUREMENT
     Dates: start: 2010
  51. LANTUS SOLOSTAR [Concomitant]
     Active Substance: INSULIN GLARGINE
     Indication: BLOOD PRESSURE MEASUREMENT
     Dates: start: 2000
  52. METOPROLOL. [Concomitant]
     Active Substance: METOPROLOL
     Indication: BLOOD PRESSURE MEASUREMENT
  53. PREDNISONE. [Concomitant]
     Active Substance: PREDNISONE
  54. HYDROCHLOROTHIAZIDE. [Concomitant]
     Active Substance: HYDROCHLOROTHIAZIDE
     Route: 048
     Dates: start: 20140710
  55. HYDROCORTISONE. [Concomitant]
     Active Substance: HYDROCORTISONE
     Dosage: 1%
     Dates: start: 20160513
  56. GLIPIZIDE. [Concomitant]
     Active Substance: GLIPIZIDE
     Route: 048
     Dates: start: 20040507

REACTIONS (13)
  - Chronic kidney disease [Unknown]
  - Dehydration [Unknown]
  - Coronary artery disease [Unknown]
  - Renal injury [Unknown]
  - Angina pectoris [Unknown]
  - Benign prostatic hyperplasia [Unknown]
  - Hypertension [Unknown]
  - End stage renal disease [Unknown]
  - Cardiac failure congestive [Unknown]
  - Kidney infection [Unknown]
  - Constipation [Unknown]
  - Anaphylactic reaction [Unknown]
  - Diabetes mellitus [Unknown]

NARRATIVE: CASE EVENT DATE: 20160323
